FAERS Safety Report 12929576 (Version 1)
Quarter: 2016Q4

REPORT INFORMATION
  Report Type: Report from Study
  Country: IT (occurrence: IT)
  Receive Date: 20161110
  Receipt Date: 20161110
  Transmission Date: 20170207
  Serious: Yes (Other)
  Sender: FDA-Public Use
  Company Number: IT-CELGENEUS-ITA-2016107378

PATIENT
  Age: 78 Year

DRUGS (1)
  1. THALIDOMIDE CELGENE [Suspect]
     Active Substance: THALIDOMIDE
     Indication: MYELODYSPLASTIC SYNDROME
     Route: 048

REACTIONS (6)
  - Liver disorder [Unknown]
  - Diabetes mellitus [Unknown]
  - Renal failure [Unknown]
  - Cardiovascular disorder [Unknown]
  - Full blood count decreased [Unknown]
  - Respiratory disorder [Unknown]
